FAERS Safety Report 6353860-1 (Version None)
Quarter: 2009Q3

REPORT INFORMATION
  Report Type: 
  Country: None (occurrence: None)
  Receive Date: 20090912
  Receipt Date: 20090622
  Transmission Date: 20100115
  Serious: No
  Sender: FDA-Public Use
  Company Number: US-ABBOTT-08P-163-0479313-00

PATIENT
  Sex: Female
  Weight: 118.04 kg

DRUGS (6)
  1. HUMIRA [Suspect]
     Indication: CROHN'S DISEASE
     Route: 050
  2. PREDNISONE [Concomitant]
     Indication: CROHN'S DISEASE
     Route: 048
  3. ENALAPRIL MALEATE [Concomitant]
     Indication: BLOOD PRESSURE
     Route: 048
  4. MESALAZINE [Concomitant]
     Indication: CROHN'S DISEASE
     Route: 048
  5. HYDROCHLOROTHIAZIDE [Concomitant]
     Indication: BLOOD PRESSURE
     Route: 048
  6. IRON INFUSION [Concomitant]
     Indication: ANAEMIA
     Route: 042
     Dates: start: 20080801

REACTIONS (3)
  - DRUG DELIVERY SYSTEM MALFUNCTION [None]
  - INCORRECT DOSE ADMINISTERED [None]
  - INJECTION SITE EXTRAVASATION [None]
